FAERS Safety Report 17943365 (Version 2)
Quarter: 2020Q3

REPORT INFORMATION
  Report Type: Spontaneous
  Country: CZ (occurrence: CZ)
  Receive Date: 20200625
  Receipt Date: 20200701
  Transmission Date: 20201103
  Serious: Yes (Other)
  Sender: FDA-Public Use
  Company Number: CZ-MYLANLABS-2020M1051000

PATIENT
  Age: 40 Year
  Sex: Female

DRUGS (9)
  1. TRAMADOL. [Suspect]
     Active Substance: TRAMADOL
     Dosage: UNK
  2. TRAMADOL. [Suspect]
     Active Substance: TRAMADOL
     Dosage: GRADUALLY, TOOK A DOSE OF 40 PRESSES OF TRAMADOL GTT METERING PUMP 4 TIMES PER DAY (IE 2000 MG/DAY
  3. TRAMADOL. [Suspect]
     Active Substance: TRAMADOL
     Dosage: UNK, INCREASED THE DAILY DOSE UP TO 40 PRESSES OF TRAMADOL 4 TIMES A DAY
     Route: 048
  4. TRAMADOL. [Suspect]
     Active Substance: TRAMADOL
     Dosage: 40 DOSAGE FORM, QD
     Route: 048
     Dates: start: 2005
  5. TRAMADOL. [Suspect]
     Active Substance: TRAMADOL
     Indication: EPILEPSY
     Dosage: 40 PUSHES OF TRAMADOL GTT 4X/DAY (DROPS)
     Route: 048
  6. CLONAZEPAM. [Suspect]
     Active Substance: CLONAZEPAM
     Indication: PRODUCT USED FOR UNKNOWN INDICATION
     Dosage: UNK, DID NOT TAKE REGULARLY
  7. ALPRAZOLAM. [Suspect]
     Active Substance: ALPRAZOLAM
     Indication: PRODUCT USED FOR UNKNOWN INDICATION
     Dosage: UNK, DID NOT TAKE REGULARLY (DOSAGE IRREGULAR)
     Route: 048
  8. TRAMADOL. [Suspect]
     Active Substance: TRAMADOL
     Indication: BACK PAIN
     Dosage: 5X 12 PUSHES PER DAY
  9. ALCOHOL. [Suspect]
     Active Substance: ALCOHOL
     Indication: PRODUCT USED FOR UNKNOWN INDICATION
     Dosage: 2 LITER, QD

REACTIONS (23)
  - Personality disorder [Unknown]
  - Drug withdrawal syndrome [Recovered/Resolved]
  - Hyperhidrosis [Recovered/Resolved]
  - Substance dependence [Unknown]
  - Insomnia [Recovered/Resolved]
  - Drug abuse [Recovered/Resolved]
  - Muscle spasms [Recovered/Resolved]
  - Mood altered [Recovered/Resolved]
  - Maternal exposure during pregnancy [Recovered/Resolved]
  - Chills [Recovered/Resolved]
  - Live birth [Recovered/Resolved]
  - Tension [Recovered/Resolved]
  - Disturbance in attention [Recovered/Resolved]
  - Memory impairment [Recovered/Resolved]
  - Overdose [Recovered/Resolved]
  - Anxiety [Recovered/Resolved]
  - Amnesia [Unknown]
  - Epilepsy [Unknown]
  - Drug dependence [Unknown]
  - Contraindicated product administered [Recovered/Resolved]
  - Feeling of body temperature change [Unknown]
  - Pain [Recovered/Resolved]
  - Depression [Unknown]
